FAERS Safety Report 8263054-0 (Version None)
Quarter: 2012Q2

REPORT INFORMATION
  Report Type: 
  Country: None (occurrence: None)
  Receive Date: 20120405
  Receipt Date: 20120327
  Transmission Date: 20120825
  Serious: Yes (Hospitalization, Other)
  Sender: FDA-Public Use
  Company Number: FR-BRISTOL-MYERS SQUIBB COMPANY-16486664

PATIENT
  Age: 87 Year
  Sex: Female

DRUGS (7)
  1. IKOREL [Concomitant]
  2. OLMESARTAN MEDOXOMIL [Concomitant]
  3. LORAZEPAM [Concomitant]
  4. COUMADIN [Suspect]
     Indication: THROMBOSIS PROPHYLAXIS
     Dosage: 12MG TAB PER DAY
     Route: 048
  5. FLECAINIDE ACETATE [Concomitant]
  6. FUROSEMIDE [Concomitant]
  7. NEXIUM [Concomitant]

REACTIONS (2)
  - RECTAL HAEMORRHAGE [None]
  - FACIAL PARESIS [None]
